FAERS Safety Report 16254075 (Version 1)
Quarter: 2019Q2

REPORT INFORMATION
  Report Type: Spontaneous
  Country: PT (occurrence: PT)
  Receive Date: 20190430
  Receipt Date: 20190430
  Transmission Date: 20190711
  Serious: Yes (Other)
  Sender: FDA-Public Use
  Company Number: PT-ROCHE-2307550

PATIENT
  Age: 18 Year
  Weight: 49 kg

DRUGS (2)
  1. XOLAIR [Suspect]
     Active Substance: OMALIZUMAB
     Indication: ASTHMA
     Route: 058
     Dates: start: 20190214
  2. XOLAIR [Suspect]
     Active Substance: OMALIZUMAB
     Route: 058
     Dates: start: 20190214

REACTIONS (11)
  - Respiratory distress [Recovered/Resolved]
  - Tachypnoea [Recovered/Resolved]
  - Administration site warmth [Recovered/Resolved]
  - Local reaction [Recovered/Resolved]
  - Wheezing [Recovered/Resolved]
  - Administration site pruritus [Recovered/Resolved]
  - Bronchospasm [Recovered/Resolved]
  - Administration site erythema [Recovered/Resolved]
  - Asthma [Recovered/Resolved]
  - Administration site papule [Recovered/Resolved]
  - Cough [Recovered/Resolved]

NARRATIVE: CASE EVENT DATE: 20190214
